FAERS Safety Report 4764249-0 (Version None)
Quarter: 2005Q3

REPORT INFORMATION
  Report Type: 
  Country: None (occurrence: None)
  Receive Date: 20050907
  Receipt Date: 20000823
  Transmission Date: 20060218
  Serious: Yes (Other)
  Sender: FDA-Public Use
  Company Number: GBR-2000-0001847

PATIENT
  Sex: Female

DRUGS (2)
  1. MORPHINE SULFATE [Suspect]
     Dosage: 10 MG, BID, ORAL
     Route: 048
  2. OLANZAPINE [Suspect]
     Dosage: 25 MG, NOCTE

REACTIONS (5)
  - DRUG INTERACTION [None]
  - OVERDOSE [None]
  - PNEUMONIA ASPIRATION [None]
  - RESPIRATORY DEPRESSION [None]
  - SEDATION [None]
